FAERS Safety Report 6684357-7 (Version None)
Quarter: 2010Q2

REPORT INFORMATION
  Report Type: 
  Country: None (occurrence: None)
  Receive Date: 20100416
  Receipt Date: 20100406
  Transmission Date: 20101027
  Serious: Yes (Hospitalization)
  Sender: FDA-Public Use
  Company Number: FR-SANOFI-AVENTIS-2010SA019889

PATIENT
  Age: 21 Year
  Sex: Female

DRUGS (6)
  1. LOVENOX [Suspect]
     Route: 058
     Dates: start: 20090831, end: 20090831
  2. VANCOMYCIN HCL [Suspect]
     Route: 042
     Dates: start: 20090831, end: 20090831
  3. VANCOMYCIN HCL [Suspect]
     Route: 042
     Dates: start: 20100104, end: 20100104
  4. MORPHINE SULFATE [Suspect]
     Route: 048
     Dates: start: 20090831, end: 20090831
  5. MIDAZOLAM HCL [Suspect]
     Route: 065
     Dates: start: 20090831, end: 20090831
  6. PARACETAMOL [Suspect]
     Route: 065
     Dates: start: 20090831, end: 20090831

REACTIONS (1)
  - ACUTE GENERALISED EXANTHEMATOUS PUSTULOSIS [None]
